FAERS Safety Report 4835836-6 (Version None)
Quarter: 2005Q4

REPORT INFORMATION
  Report Type: 
  Country: None (occurrence: None)
  Receive Date: 20051118
  Receipt Date: 20050922
  Transmission Date: 20060501
  Serious: Yes (Hospitalization)
  Sender: FDA-Public Use
  Company Number: 2005BI017757

PATIENT
  Age: 63 Year
  Sex: Male

DRUGS (6)
  1. AMEVIVE [Suspect]
     Indication: PSORIASIS
     Dosage: SEE IMAGE
     Route: 030
     Dates: start: 20031117
  2. AMEVIVE [Suspect]
     Indication: PSORIASIS
     Dosage: SEE IMAGE
     Route: 030
     Dates: start: 20041115
  3. PAXIL [Concomitant]
  4. PLAVIX [Concomitant]
  5. ASPIRIN [Concomitant]
  6. LIPITOR [Concomitant]

REACTIONS (2)
  - ARTERIAL OCCLUSIVE DISEASE [None]
  - HYPERLIPIDAEMIA [None]
